FAERS Safety Report 8625019-6 (Version None)
Quarter: 2012Q3

REPORT INFORMATION
  Report Type: 
  Country: None (occurrence: None)
  Receive Date: 20120827
  Receipt Date: 20120816
  Transmission Date: 20120928
  Serious: Yes (Hospitalization)
  Sender: FDA-Public Use
  Company Number: FR-BRISTOL-MYERS SQUIBB COMPANY-15174329

PATIENT
  Age: 46 Year
  Sex: Male

DRUGS (4)
  1. REYATAZ [Suspect]
     Indication: HIV INFECTION
     Dates: start: 20051124, end: 20090918
  2. NORVIR [Concomitant]
     Indication: ANTIRETROVIRAL THERAPY
     Dates: start: 20051124, end: 20090918
  3. TRUVADA [Concomitant]
     Indication: ANTIRETROVIRAL THERAPY
     Dates: start: 20051124, end: 20090918
  4. CRESTOR [Concomitant]
     Dates: start: 20061109, end: 20090918

REACTIONS (2)
  - PANCREATITIS NECROTISING [None]
  - CHOLELITHIASIS [None]
